FAERS Safety Report 12732945 (Version 1)
Quarter: 2016Q3

REPORT INFORMATION
  Report Type: Spontaneous
  Country: BR (occurrence: BR)
  Receive Date: 20160912
  Receipt Date: 20160912
  Transmission Date: 20161109
  Serious: Yes (Life-Threatening, Other)
  Sender: FDA-Public Use
  Company Number: BR-ASTRAZENECA-2016SE95079

PATIENT
  Age: 28 Year
  Sex: Male
  Weight: 120 kg

DRUGS (1)
  1. NEXIUM [Suspect]
     Active Substance: ESOMEPRAZOLE MAGNESIUM
     Dosage: 42 TABLETS IN ONCE/SINGLE ADMINISTRATION
     Route: 048
     Dates: start: 20160904, end: 20160904

REACTIONS (3)
  - Dizziness [Not Recovered/Not Resolved]
  - Overdose [Recovered/Resolved]
  - Suicide attempt [Recovered/Resolved with Sequelae]

NARRATIVE: CASE EVENT DATE: 20160904
